FAERS Safety Report 8397942-1 (Version None)
Quarter: 2012Q2

REPORT INFORMATION
  Report Type: 
  Country: None (occurrence: None)
  Receive Date: 20120323
  Receipt Date: 20110208
  Transmission Date: 20120825
  Serious: Yes (Disabling, Other)
  Sender: FDA-Public Use
  Company Number: 163-21880-11011397

PATIENT
  Age: 78 Year
  Sex: Female

DRUGS (10)
  1. OMEPRAZOLE [Concomitant]
  2. LANTUS SOLOSTAR PEN (INSULIN GLARGINE) [Concomitant]
  3. NOVOLIN INSULIN U-100 (INSULIN HUMAN INJECTION, ISOPHANE) [Concomitant]
  4. REVLIMID [Suspect]
     Indication: MULTIPLE MYELOMA
     Dosage: 21 MG, X 21 DAYS, PO
     Route: 048
     Dates: start: 20101019, end: 20101208
  5. ACTOS [Concomitant]
  6. CIPROFLOXACIN [Concomitant]
  7. JANUVIA [Concomitant]
  8. POLY IRON (POLYSACCHARIDE-IRON COMPLEX) [Concomitant]
  9. DEXAMETHASONE [Concomitant]
  10. GLYBURIDE [Concomitant]

REACTIONS (2)
  - PLATELET COUNT DECREASED [None]
  - HAEMOGLOBIN DECREASED [None]
